FAERS Safety Report 11809977 (Version 2)
Quarter: 2015Q4

REPORT INFORMATION
  Report Type: Spontaneous
  Country: IT (occurrence: IT)
  Receive Date: 20151208
  Receipt Date: 20151210
  Transmission Date: 20160305
  Serious: Yes (Death, Other)
  Sender: FDA-Public Use
  Company Number: PHHY2015IT159360

PATIENT
  Age: 65 Year
  Sex: Male

DRUGS (41)
  1. COMTAN [Suspect]
     Active Substance: ENTACAPONE
     Indication: PARKINSON^S DISEASE
     Dosage: 200 MG, QID
     Route: 065
     Dates: start: 20061018
  2. COMTAN [Suspect]
     Active Substance: ENTACAPONE
     Dosage: 200 MG, 6QD
     Route: 065
     Dates: start: 20060908
  3. MADOPAR [Suspect]
     Active Substance: BENSERAZIDE HYDROCHLORIDE\LEVODOPA
     Dosage: HALF AND 4 TABLETS IN 6 ADMINISTRATIONS DAILY
     Route: 065
  4. COMTAN [Suspect]
     Active Substance: ENTACAPONE
     Dosage: 200 MG, QID
     Route: 065
  5. MIRAPEXIN [Suspect]
     Active Substance: PRAMIPEXOLE
     Dosage: 0.75 MG HALF AND 1 TABLET THREE TIMES A DAY
     Route: 065
     Dates: start: 20040825
  6. MIRAPEXIN [Suspect]
     Active Substance: PRAMIPEXOLE
     Dosage: INCREASED TO 3 TIMES DAILY
     Route: 065
     Dates: start: 20041118
  7. LEVODOPA [Suspect]
     Active Substance: LEVODOPA
     Indication: PARKINSON^S DISEASE
     Dosage: 01 DOSAGE FORM IN 1 DAY
     Route: 065
     Dates: start: 2006
  8. MADOPAR [Suspect]
     Active Substance: BENSERAZIDE HYDROCHLORIDE\LEVODOPA
     Indication: PARKINSON^S DISEASE
     Dosage: HALF OR THREE QUARTERS IN 4 ADMINISTARTIONS DAILY
     Route: 065
     Dates: start: 2008
  9. MADOPAR [Suspect]
     Active Substance: BENSERAZIDE HYDROCHLORIDE\LEVODOPA
     Dosage: 04 TIMES DAILY
     Route: 065
  10. AZILECT [Concomitant]
     Active Substance: RASAGILINE MESYLATE
     Indication: PRODUCT USED FOR UNKNOWN INDICATION
     Dosage: 1 DF, QD
     Route: 065
  11. TAVOR [Concomitant]
     Active Substance: LORAZEPAM
     Indication: INSOMNIA
     Dosage: 2.5 MG HALF TABLET DAILY
     Route: 065
  12. TAVOR [Concomitant]
     Active Substance: LORAZEPAM
     Dosage: 2.5 MG, 1 TABLET
     Route: 065
  13. MOVICOL [Concomitant]
     Active Substance: POLYETHYLENE GLYCOL 3350\POTASSIUM CHLORIDE\SODIUM BICARBONATE\SODIUM CHLORIDE
     Indication: PRODUCT USED FOR UNKNOWN INDICATION
     Route: 065
  14. MIRAPEXIN [Suspect]
     Active Substance: PRAMIPEXOLE
     Dosage: 0.7 MG HALF  HALF 1 TABLET DAILY
     Route: 065
     Dates: start: 20070627
  15. MIRAPEXIN [Suspect]
     Active Substance: PRAMIPEXOLE
     Dosage: 0.7 MG HALF TABLET TWICE DAILY
     Route: 065
  16. MADOPAR [Suspect]
     Active Substance: BENSERAZIDE HYDROCHLORIDE\LEVODOPA
     Dosage: DECREASED 3 ADMINISTRATIONS DAILY
     Route: 065
  17. MADOPAR [Suspect]
     Active Substance: BENSERAZIDE HYDROCHLORIDE\LEVODOPA
     Dosage: 02 DF, QD
     Route: 065
     Dates: start: 20080829
  18. SIRIO [Suspect]
     Active Substance: CARBIDOPA\MELEVODOPA
     Dosage: 25 PLUS100 (1 IN 1 D)
     Route: 065
  19. SIRIO [Suspect]
     Active Substance: CARBIDOPA\MELEVODOPA
     Dosage: 25 PLUS 100 (1 DOSAGE FORM,1 D)????
     Route: 065
     Dates: start: 20080806
  20. SIRIO [Suspect]
     Active Substance: CARBIDOPA\MELEVODOPA
     Dosage: 1 DOSAGE FORM,8 IN 1 D
     Route: 065
     Dates: start: 20080829
  21. STILNOX [Concomitant]
     Active Substance: ZOLPIDEM TARTRATE
     Dosage: UNK
     Route: 065
     Dates: start: 20080408
  22. XANAX [Concomitant]
     Active Substance: ALPRAZOLAM
     Indication: PRODUCT USED FOR UNKNOWN INDICATION
     Dosage: 0.50 MG, TID
     Route: 065
     Dates: start: 20080208
  23. ANDROCUR [Concomitant]
     Active Substance: CYPROTERONE ACETATE
     Indication: PRODUCT USED FOR UNKNOWN INDICATION
     Dosage: 100 MG, UNK
     Route: 065
  24. COMTAN [Suspect]
     Active Substance: ENTACAPONE
     Dosage: 200 MG, 5QD
     Route: 065
     Dates: start: 20080806
  25. MIRAPEXIN [Suspect]
     Active Substance: PRAMIPEXOLE
     Dosage: 0.7 MG HALF + HALF + 1 TABLET DAILY
     Route: 065
     Dates: start: 20070115
  26. MADOPAR [Suspect]
     Active Substance: BENSERAZIDE HYDROCHLORIDE\LEVODOPA
     Dosage: 01 OR THREE QUARTERS FOR 4 DAILY
     Route: 065
     Dates: start: 20071129
  27. MIRAPEXIN [Suspect]
     Active Substance: PRAMIPEXOLE
     Indication: PARKINSON^S DISEASE
     Dosage: 0.75 MG HALF AND 1 TABLET DAILY
     Route: 065
     Dates: start: 20010101
  28. MADOPAR [Suspect]
     Active Substance: BENSERAZIDE HYDROCHLORIDE\LEVODOPA
     Dosage: 2/3 OF TABLET IN 06 ADMINISTRATIONS DAILY
     Route: 065
     Dates: start: 20080806
  29. SIRIO [Suspect]
     Active Substance: CARBIDOPA\MELEVODOPA
     Dosage: 1 DOSAGE FORM,1 D
     Route: 065
  30. ZANEDIP [Concomitant]
     Active Substance: LERCANIDIPINE HYDROCHLORIDE
     Indication: PRODUCT USED FOR UNKNOWN INDICATION
     Dosage: 0.5 DF, QD
     Route: 065
  31. SEREUPIN [Concomitant]
     Active Substance: PAROXETINE HYDROCHLORIDE
     Indication: PRODUCT USED FOR UNKNOWN INDICATION
     Dosage: 0.5 DF, QD
     Route: 065
  32. COMTAN [Suspect]
     Active Substance: ENTACAPONE
     Dosage: 200 MG, 6QD
     Route: 065
  33. STALEVO [Suspect]
     Active Substance: CARBIDOPA\ENTACAPONE\LEVODOPA
     Indication: PARKINSON^S DISEASE
     Dosage: 04 IN 01 DAY (100)
     Route: 065
  34. REMERON [Concomitant]
     Active Substance: MIRTAZAPINE
     Indication: PRODUCT USED FOR UNKNOWN INDICATION
     Dosage: 0.5 DF, QD
     Route: 065
  35. MIRAPEXIN [Suspect]
     Active Substance: PRAMIPEXOLE
     Dosage: 0.7 MG HALF TABLET TWICE DAILY
     Route: 065
     Dates: start: 20070323
  36. SIRIO [Suspect]
     Active Substance: CARBIDOPA\MELEVODOPA
     Dosage: 25 PLUS 100 (2 IN 1 D)
     Route: 065
     Dates: start: 20080208
  37. MIRAPEXIN [Suspect]
     Active Substance: PRAMIPEXOLE
     Dosage: 0.7 MG HALF AND 1 TABLET DAILY
     Route: 065
     Dates: start: 20071129
  38. SIRIO [Suspect]
     Active Substance: CARBIDOPA\MELEVODOPA
     Indication: DEPRESSION
     Dosage: 25 PLUS 100 (2 IN 1 D)
     Route: 065
  39. STILNOX [Concomitant]
     Active Substance: ZOLPIDEM TARTRATE
     Indication: INSOMNIA
     Dosage: 1 DF, UNK
     Route: 065
  40. CASODEX [Concomitant]
     Active Substance: BICALUTAMIDE
     Indication: PROSTATE CANCER
     Dosage: 150 MG, QD
     Route: 065
     Dates: start: 20080208
  41. TAVOR [Concomitant]
     Active Substance: LORAZEPAM
     Dosage: 2.5 MG HALF TABLET
     Route: 065
     Dates: start: 20080806

REACTIONS (24)
  - Death [Fatal]
  - Gait disturbance [Unknown]
  - Alcohol abuse [Unknown]
  - Drug abuse [Unknown]
  - Dyskinesia [Unknown]
  - Scoliosis [Unknown]
  - Malaise [Unknown]
  - Hypersexuality [Unknown]
  - Chorea [Unknown]
  - Presyncope [Unknown]
  - Grimacing [Unknown]
  - Parkinson^s disease [Unknown]
  - Joint dislocation [Unknown]
  - Spondylitis [Unknown]
  - Hallucination [Unknown]
  - Fall [Unknown]
  - Restless legs syndrome [Unknown]
  - Muscle rigidity [Unknown]
  - Compulsive hoarding [Unknown]
  - Anxiety [Unknown]
  - Compulsive shopping [Unknown]
  - Pathological gambling [Unknown]
  - Somnolence [Unknown]
  - Tremor [Unknown]

NARRATIVE: CASE EVENT DATE: 20070928
